FAERS Safety Report 13989619 (Version 1)
Quarter: 2017Q3

REPORT INFORMATION
  Report Type: Spontaneous
  Country: US (occurrence: US)
  Receive Date: 20170920
  Receipt Date: 20170920
  Transmission Date: 20171128
  Serious: Yes (Hospitalization)
  Sender: FDA-Public Use
  Company Number: US-WEST-WARD PHARMACEUTICALS CORP.-US-H14001-17-03490

PATIENT
  Age: 41 Year
  Sex: Female

DRUGS (1)
  1. METHAMPHETAMINE [Suspect]
     Active Substance: METHAMPHETAMINE
     Indication: PRODUCT USED FOR UNKNOWN INDICATION

REACTIONS (10)
  - Leukocytosis [Recovering/Resolving]
  - Drug abuse [Unknown]
  - Dyspnoea exertional [Recovering/Resolving]
  - Haemoptysis [Recovering/Resolving]
  - Pleural effusion [Recovering/Resolving]
  - Chest pain [Recovering/Resolving]
  - Atelectasis [Recovering/Resolving]
  - Pulmonary toxicity [Recovering/Resolving]
  - Hypoxia [Recovering/Resolving]
  - Pyrexia [Recovering/Resolving]
